FAERS Safety Report 4873076-5 (Version None)
Quarter: 2005Q4

REPORT INFORMATION
  Report Type: 
  Country: None (occurrence: None)
  Receive Date: 20051201
  Receipt Date: 20050714
  Transmission Date: 20060501
  Serious: No
  Sender: FDA-Public Use
  Company Number: 2005PV000399

PATIENT
  Age: 51 Year
  Sex: Female
  Weight: 90.7194 kg

DRUGS (2)
  1. BYETTA [Suspect]
     Indication: DIABETES MELLITUS NON-INSULIN-DEPENDENT
     Dosage: 5 MCG; BID; SC
     Route: 058
     Dates: start: 20050714
  2. ANTIBIOTICS [Concomitant]

REACTIONS (5)
  - BLOOD URINE [None]
  - CYSTITIS [None]
  - MICTURITION URGENCY [None]
  - POLLAKIURIA [None]
  - WEIGHT DECREASED [None]
